FAERS Safety Report 8220913-2 (Version None)
Quarter: 2012Q1

REPORT INFORMATION
  Report Type: 
  Country: None (occurrence: None)
  Receive Date: 20120319
  Receipt Date: 20120306
  Transmission Date: 20120608
  Serious: No
  Sender: FDA-Public Use
  Company Number: KR-JNJFOC-20120304533

PATIENT

DRUGS (1)
  1. DURAGESIC-100 [Suspect]
     Indication: PROCEDURAL PAIN
     Route: 062

REACTIONS (2)
  - DRUG PRESCRIBING ERROR [None]
  - OFF LABEL USE [None]
